FAERS Safety Report 6537712-X (Version None)
Quarter: 2010Q1

REPORT INFORMATION
  Report Type: 
  Country: None (occurrence: None)
  Receive Date: 20100114
  Receipt Date: 20091230
  Transmission Date: 20100710
  Serious: Yes (Congenital Anomaly)
  Sender: FDA-Public Use
  Company Number: ES-JNJFOC-20091107980

PATIENT
  Sex: Male
  Weight: 2.16 kg

DRUGS (6)
  1. REMICADE [Suspect]
     Indication: DRUG EXPOSURE DURING PREGNANCY
  2. CORTICOSTEROIDS [Concomitant]
     Indication: DRUG EXPOSURE DURING PREGNANCY
  3. PREDNISONE [Concomitant]
     Indication: DRUG EXPOSURE DURING PREGNANCY
  4. FERROUS SULFATE TAB [Concomitant]
     Indication: DRUG EXPOSURE DURING PREGNANCY
  5. VITAMINS NOS [Concomitant]
     Indication: DRUG EXPOSURE DURING PREGNANCY
  6. CARBOCISTEINE [Concomitant]
     Indication: DRUG EXPOSURE DURING PREGNANCY

REACTIONS (10)
  - CONGENITAL MUSCULOSKELETAL ANOMALY [None]
  - CONJUNCTIVITIS [None]
  - HYPOGLYCAEMIA NEONATAL [None]
  - HYPOTONIA [None]
  - JAUNDICE NEONATAL [None]
  - NEONATAL RESPIRATORY DISTRESS SYNDROME [None]
  - POLYCYTHAEMIA [None]
  - POOR SUCKING REFLEX [None]
  - SINUS BRADYCARDIA [None]
  - TEMPERATURE REGULATION DISORDER [None]
